FAERS Safety Report 5406051-2 (Version None)
Quarter: 2007Q3

REPORT INFORMATION
  Report Type: 
  Country: None (occurrence: None)
  Receive Date: 20070806
  Receipt Date: 20070801
  Transmission Date: 20080115
  Serious: Yes (Hospitalization)
  Sender: FDA-Public Use
  Company Number: B0477565A

PATIENT
  Age: 21 Year
  Sex: Female

DRUGS (7)
  1. PAXIL [Suspect]
     Indication: DEPRESSION
     Dosage: 20MG PER DAY
     Route: 048
     Dates: start: 20061013, end: 20061026
  2. NAUZELIN [Concomitant]
     Indication: VOMITING
     Dosage: 10MG PER DAY
     Route: 048
     Dates: start: 20061013, end: 20061025
  3. AMOBAN [Concomitant]
     Indication: INSOMNIA
     Dosage: 10MG PER DAY
     Route: 048
     Dates: start: 20061018, end: 20061025
  4. CHINESE MEDICINE [Concomitant]
     Dosage: 7.5MG PER DAY
     Route: 048
     Dates: start: 20060927, end: 20061025
  5. CHINESE MEDICINE [Concomitant]
     Dosage: 2.5MG PER DAY
     Route: 048
     Dates: start: 20060927, end: 20061025
  6. TOLEDOMIN [Concomitant]
     Indication: DEPRESSION
     Dosage: 300MG PER DAY
     Route: 048
     Dates: start: 20061025, end: 20061025
  7. DORAL [Concomitant]
     Indication: INSOMNIA
     Dosage: 20MG PER DAY
     Route: 048
     Dates: start: 20061025, end: 20061025

REACTIONS (3)
  - INTENTIONAL OVERDOSE [None]
  - SELF INJURIOUS BEHAVIOUR [None]
  - SUICIDE ATTEMPT [None]
